FAERS Safety Report 6512282-0 (Version None)
Quarter: 2009Q4

REPORT INFORMATION
  Report Type: 
  Country: None (occurrence: None)
  Receive Date: 20091222
  Receipt Date: 20090713
  Transmission Date: 20100525
  Serious: No
  Sender: FDA-Public Use
  Company Number: US-ASTRAZENECA-2009UW19513

PATIENT
  Age: 75 Year
  Sex: Male
  Weight: 97.5 kg

DRUGS (2)
  1. CRESTOR [Suspect]
     Route: 048
  2. FLOMAX [Concomitant]

REACTIONS (3)
  - DIARRHOEA [None]
  - FATIGUE [None]
  - FEELING ABNORMAL [None]
